FAERS Safety Report 10595080 (Version 1)
Quarter: 2014Q4

REPORT INFORMATION
  Report Type: Spontaneous
  Country: AU (occurrence: None)
  Receive Date: 20141106
  Receipt Date: 20141106
  Transmission Date: 20150529
  Serious: Yes (Other)
  Sender: FDA-Public Use
  Company Number: GAM-375-14-AU

PATIENT
  Age: 46 Year
  Sex: Female

DRUGS (1)
  1. OCTAGAM IMMUNE GLOBULIN (HUMAN) [Suspect]
     Active Substance: HUMAN IMMUNOGLOBULIN G
     Indication: PRODUCT USED FOR UNKNOWN INDICATION
     Route: 042
     Dates: start: 20140424, end: 20140424

REACTIONS (5)
  - Pyrexia [None]
  - Chest pain [None]
  - Tachycardia [None]
  - Hypertension [None]
  - Serum sickness [None]

NARRATIVE: CASE EVENT DATE: 2014
